FAERS Safety Report 16858318 (Version 1)
Quarter: 2019Q3

REPORT INFORMATION
  Report Type: Spontaneous
  Country: IT (occurrence: IT)
  Receive Date: 20190926
  Receipt Date: 20190926
  Transmission Date: 20191005
  Serious: Yes (Other)
  Sender: FDA-Public Use
  Company Number: IT-SHIRE-IT201930876

PATIENT

DRUGS (2)
  1. ADVATE [Suspect]
     Active Substance: ANTIHEMOPHILIC FACTOR, HUMAN RECOMBINANT
     Indication: FACTOR VIII DEFICIENCY
     Dosage: 53.6 INTERNATIONAL UNIT, 3X A WEEK
     Route: 050
  2. ADVATE [Suspect]
     Active Substance: ANTIHEMOPHILIC FACTOR, HUMAN RECOMBINANT
     Dosage: 37.8 INTERNATIONAL UNIT/KILOGRAM, OTHER , EVERY 72 H
     Route: 050

REACTIONS (2)
  - Haemorrhage [Unknown]
  - Haematoma [Unknown]
